FAERS Safety Report 5826713-2 (Version None)
Quarter: 2008Q3

REPORT INFORMATION
  Report Type: 
  Country: None (occurrence: None)
  Receive Date: 20080725
  Receipt Date: 20080717
  Transmission Date: 20090109
  Serious: Yes (Hospitalization)
  Sender: FDA-Public Use
  Company Number: ADE# 08-115

PATIENT
  Age: 65 Year
  Sex: Female
  Weight: 53.5244 kg

DRUGS (1)
  1. DIGOXIN [Suspect]
     Indication: CARDIAC DISORDER
     Dosage: 1 TABLET DAILY

REACTIONS (1)
  - CARDIAC PACEMAKER INSERTION [None]
